FAERS Safety Report 11630794 (Version 1)
Quarter: 2015Q4

REPORT INFORMATION
  Report Type: Spontaneous
  Country: US (occurrence: US)
  Receive Date: 20151014
  Receipt Date: 20151014
  Transmission Date: 20160304
  Serious: No
  Sender: FDA-Public Use
  Company Number: US-INDIVIOR-RB-67978-2014

PATIENT
  Age: 30 Year
  Sex: Female

DRUGS (6)
  1. SUBOXONE [Suspect]
     Active Substance: BUPRENORPHINE HYDROCHLORIDE\NALOXONE HYDROCHLORIDE
     Indication: DRUG DEPENDENCE
     Dosage: SUBOXONE FILM; TAKING ONE 8 MG FILM AND TWO 2 MG FILMS
     Route: 060
     Dates: start: 201209, end: 201304
  2. BUPRENORPHINE GENERIC [Suspect]
     Active Substance: BUPRENORPHINE
     Dosage: DAILY DOSE WAS ACHIEVED BY TAKING ONE 8 MG AND TWO 2 MG TABLETS
     Route: 060
     Dates: start: 2014, end: 2014
  3. BUPRENORPHINE/NALOXONE GENERIC [Suspect]
     Active Substance: BUPRENORPHINE\NALOXONE
     Indication: DRUG DEPENDENCE
     Dosage: TAKING ONE 8 MG TABLET AND TWO 2 MG TABLETS
     Route: 060
     Dates: start: 201312, end: 2014
  4. SUBOXONE [Suspect]
     Active Substance: BUPRENORPHINE HYDROCHLORIDE\NALOXONE HYDROCHLORIDE
     Dosage: SUBOXONE FILM; TAKING ONE 8 MG FILM AND TWO 2 MG FILMS
     Route: 060
     Dates: start: 201312, end: 201312
  5. BUPRENORPHINE GENERIC [Suspect]
     Active Substance: BUPRENORPHINE
     Indication: DRUG DEPENDENCE
     Dosage: TAKING ONE 8 MG TABLET AND TWO 2 MG TABLETS
     Route: 060
     Dates: start: 201304, end: 201312
  6. SUBUTEX [Suspect]
     Active Substance: BUPRENORPHINE HYDROCHLORIDE
     Indication: DRUG DEPENDENCE
     Dosage: 8 MG, BID
     Route: 060
     Dates: start: 2014

REACTIONS (5)
  - Substance abuse [Recovered/Resolved]
  - Tongue blistering [Recovered/Resolved]
  - Maternal exposure during pregnancy [Recovered/Resolved]
  - Proteinuria [Recovered/Resolved]
  - Migraine [Recovered/Resolved]

NARRATIVE: CASE EVENT DATE: 2013
